FAERS Safety Report 6907801-6 (Version None)
Quarter: 2010Q3

REPORT INFORMATION
  Report Type: 
  Country: None (occurrence: None)
  Receive Date: 20100805
  Receipt Date: 20100727
  Transmission Date: 20110219
  Serious: Yes (Hospitalization)
  Sender: FDA-Public Use
  Company Number: FR-ASTRAZENECA-2010SE35269

PATIENT
  Age: 31323 Day
  Sex: Female

DRUGS (13)
  1. NEXIUM [Suspect]
     Route: 048
     Dates: end: 20100707
  2. NEXEN [Suspect]
     Indication: OSTEOARTHRITIS
     Route: 048
     Dates: end: 20100517
  3. COAPROVEL [Suspect]
     Route: 048
     Dates: end: 20100602
  4. BISOPROLOL [Suspect]
     Route: 048
     Dates: end: 20100518
  5. PROZAC [Concomitant]
  6. LERCAN [Concomitant]
  7. CALCIUM D3 [Concomitant]
  8. TRANSIPEG [Concomitant]
  9. LEXOMIL [Concomitant]
  10. XYZAL [Concomitant]
  11. TOPALGIC [Concomitant]
  12. NITROGLYCERIN [Concomitant]
  13. LOVENOX [Concomitant]

REACTIONS (1)
  - INTERSTITIAL LUNG DISEASE [None]
